FAERS Safety Report 8796743 (Version 1)
Quarter: 2012Q4

REPORT INFORMATION
  Report Type: 
  Country: BR (occurrence: BR)
  Receive Date: 20120919
  Receipt Date: 20120919
  Transmission Date: 20130627
  Serious: Yes (Hospitalization, Other)
  Sender: FDA-Public Use
  Company Number: BR-009507513-1209BRA007172

PATIENT
  Age: 49 None
  Sex: Female
  Weight: 94 kg

DRUGS (4)
  1. VICTRELIS [Suspect]
     Indication: HEPATITIS C
     Dosage: UNK, tid
     Route: 048
     Dates: start: 20120515, end: 20120817
  2. REBETOL [Suspect]
     Indication: HEPATITIS C
     Dosage: UNK, bid
     Dates: end: 20120817
  3. PEGASYS [Concomitant]
     Indication: HEPATITIS C
     Dosage: UNK, qw
     Dates: end: 20120817
  4. LOSARTAN POTASSIUM [Concomitant]
     Indication: HYPERTENSION
     Dosage: 50 mg, qd

REACTIONS (7)
  - Deafness unilateral [Unknown]
  - Ear pain [Unknown]
  - Sinusitis [Unknown]
  - Ear infection [Unknown]
  - Anaemia [Recovered/Resolved]
  - Pneumonia [Not Recovered/Not Resolved]
  - Bronchitis [Unknown]
